FAERS Safety Report 19576687 (Version 1)
Quarter: 2021Q3

REPORT INFORMATION
  Report Type: Spontaneous
  Country: US (occurrence: US)
  Receive Date: 20210719
  Receipt Date: 20210719
  Transmission Date: 20211014
  Serious: No
  Sender: FDA-Public Use
  Company Number: None

PATIENT
  Age: 71 Year
  Sex: Male

DRUGS (1)
  1. APIXABAN (APIXABAN 5MG TAB) [Suspect]
     Active Substance: APIXABAN
     Indication: ATRIAL FIBRILLATION
     Route: 048
     Dates: start: 20210709, end: 20210711

REACTIONS (7)
  - Postoperative wound complication [None]
  - Therapy interrupted [None]
  - Post procedural contusion [None]
  - Incision site haemorrhage [None]
  - Skin graft [None]
  - Incision site swelling [None]
  - Temporomandibular joint surgery [None]

NARRATIVE: CASE EVENT DATE: 20210711
